FAERS Safety Report 24276373 (Version 2)
Quarter: 2024Q3

REPORT INFORMATION
  Report Type: Spontaneous
  Country: NO (occurrence: NO)
  Receive Date: 20240903
  Receipt Date: 20240918
  Transmission Date: 20241016
  Serious: Yes (Other)
  Sender: NOVARTIS
  Company Number: NO-002147023-NVSC2024NO175426

PATIENT
  Age: 85 Year
  Sex: Male

DRUGS (1)
  1. EXFORGE HCT [Suspect]
     Active Substance: AMLODIPINE BESYLATE\HYDROCHLOROTHIAZIDE\VALSARTAN
     Indication: Blood pressure measurement
     Dosage: 1 DOSAGE FORM, QD (10MG/160MG)
     Route: 065

REACTIONS (6)
  - Face injury [Unknown]
  - Fall [Unknown]
  - Balance disorder [Unknown]
  - Pollakiuria [Recovering/Resolving]
  - Headache [Not Recovered/Not Resolved]
  - Dizziness [Unknown]

NARRATIVE: CASE EVENT DATE: 20240823
